FAERS Safety Report 18271173 (Version 1)
Quarter: 2020Q3

REPORT INFORMATION
  Report Type: Spontaneous
  Country: US (occurrence: US)
  Receive Date: 20200916
  Receipt Date: 20200916
  Transmission Date: 20201103
  Serious: No
  Sender: FDA-Public Use
  Company Number: US-ITALFARMACO SPA-2090777

PATIENT
  Age: 60 Year
  Sex: Female

DRUGS (13)
  1. VENTOLIN HFA [Concomitant]
     Active Substance: ALBUTEROL SULFATE
  2. CETIRIZINE [Concomitant]
     Active Substance: CETIRIZINE HYDROCHLORIDE
  3. GABAPENTIN. [Concomitant]
     Active Substance: GABAPENTIN
  4. ACETAMINOPHEN. [Concomitant]
     Active Substance: ACETAMINOPHEN
  5. BUPROPION. [Concomitant]
     Active Substance: BUPROPION
  6. FAMOTIDINE. [Concomitant]
     Active Substance: FAMOTIDINE
  7. GUAIFENESIN. [Concomitant]
     Active Substance: GUAIFENESIN
  8. TRAMADOL. [Concomitant]
     Active Substance: TRAMADOL
  9. ALPRAZOLAM. [Concomitant]
     Active Substance: ALPRAZOLAM
  10. TRESIBA [Concomitant]
     Active Substance: INSULIN DEGLUDEC
  11. AMLODIPINE [Concomitant]
     Active Substance: AMLODIPINE BESYLATE
  12. RAMIPRIL. [Concomitant]
     Active Substance: RAMIPRIL
  13. TIGLUTIK [Suspect]
     Active Substance: RILUZOLE
     Indication: AMYOTROPHIC LATERAL SCLEROSIS
     Dates: start: 20200521, end: 20200621

REACTIONS (4)
  - Dyspnoea [Not Recovered/Not Resolved]
  - Hypoaesthesia oral [Not Recovered/Not Resolved]
  - Palpitations [Not Recovered/Not Resolved]
  - Pharyngeal hypoaesthesia [Not Recovered/Not Resolved]
